FAERS Safety Report 4400993-2 (Version None)
Quarter: 2004Q3

REPORT INFORMATION
  Report Type: 
  Country: None (occurrence: None)
  Receive Date: 20040907
  Receipt Date: 20030910
  Transmission Date: 20050211
  Serious: No
  Sender: FDA-Public Use
  Company Number: US-BRISTOL-MYERS SQUIBB COMPANY-12379376

PATIENT
  Age: 69 Year
  Sex: Female
  Weight: 96 kg

DRUGS (12)
  1. WARFARIN SODIUM [Suspect]
     Indication: ATRIAL FIBRILLATION
     Dosage: DOSE:  5 MG ALT 6 MG DAILY.  PREVIOUSLY TAKING 6 MG DAILY. DURATION:  OVER A YEAR.
     Route: 048
     Dates: start: 20020101
  2. WARFARIN SODIUM [Suspect]
     Indication: HEART RATE IRREGULAR
     Dosage: DOSE:  5 MG ALT 6 MG DAILY.  PREVIOUSLY TAKING 6 MG DAILY. DURATION:  OVER A YEAR.
     Route: 048
     Dates: start: 20020101
  3. LASIX [Concomitant]
  4. ZOCOR [Concomitant]
  5. DIAZEPAM [Concomitant]
  6. ATENOLOL [Concomitant]
  7. CALTRATE [Concomitant]
  8. CRANBERRY [Concomitant]
  9. BENADRYL [Concomitant]
  10. SINUTAB [Concomitant]
  11. CODEINE [Concomitant]
  12. MELANIN [Concomitant]

REACTIONS (6)
  - CONTUSION [None]
  - PETECHIAE [None]
  - PROTHROMBIN TIME SHORTENED [None]
  - PRURITUS [None]
  - SKIN BLEEDING [None]
  - SKIN LACERATION [None]
